FAERS Safety Report 7644027-5 (Version None)
Quarter: 2011Q3

REPORT INFORMATION
  Report Type: 
  Country: None (occurrence: None)
  Receive Date: 20110729
  Receipt Date: 20110718
  Transmission Date: 20111222
  Serious: Yes (Hospitalization)
  Sender: FDA-Public Use
  Company Number: FR-CELGENEUS-056-50794-11071949

PATIENT
  Sex: Male

DRUGS (7)
  1. DILTIAZEM HCL [Concomitant]
     Dosage: 200 MILLIGRAM
     Route: 048
  2. VIDAZA [Suspect]
     Dosage: 75 MILLIGRAM/SQ. METER
     Route: 041
     Dates: start: 20110608, end: 20110610
  3. ONDANSERTRON HYDROCHLORIDE [Suspect]
     Indication: NAUSEA
     Dosage: 8 MILLIGRAM
     Route: 048
     Dates: start: 20110608, end: 20110610
  4. PREDNISONE [Concomitant]
     Dosage: 12.5 MILLIGRAM
     Route: 048
  5. CLONAZEPAM [Concomitant]
     Dosage: 7 DROPS
     Route: 048
  6. OMEPRAZOLE [Concomitant]
     Dosage: 20 MILLIGRAM
     Route: 048
  7. CACIT VITAMINE D3 [Concomitant]
     Dosage: 1 DOSAGE FORMS
     Route: 048

REACTIONS (2)
  - MYOCARDIAL INFARCTION [None]
  - CHEST PAIN [None]
